FAERS Safety Report 5780625-1 (Version None)
Quarter: 2008Q2

REPORT INFORMATION
  Report Type: 
  Country: None (occurrence: None)
  Receive Date: 20080620
  Receipt Date: 20080611
  Transmission Date: 20081010
  Serious: Yes (Hospitalization, Other)
  Sender: FDA-Public Use
  Company Number: US-ELI_LILLY_AND_COMPANY-US200806002557

PATIENT
  Sex: Male

DRUGS (4)
  1. HUMALOG MIX 75/25 [Suspect]
     Dosage: UNK, UNK
  2. HUMALOG MIX 75/25 [Suspect]
     Dates: start: 20080501
  3. APIDRA [Concomitant]
     Dosage: UNK, UNK
     Dates: start: 20070101, end: 20080501
  4. LANTUS [Concomitant]
     Dosage: UNK, UNK
     Dates: start: 20070101, end: 20080501

REACTIONS (6)
  - ANIMAL BITE [None]
  - BLINDNESS TRANSIENT [None]
  - HYPOAESTHESIA [None]
  - KETOACIDOSIS [None]
  - MOVEMENT DISORDER [None]
  - NEUROPATHY PERIPHERAL [None]
